FAERS Safety Report 5193139-7 (Version None)
Quarter: 2006Q4

REPORT INFORMATION
  Report Type: 
  Country: None (occurrence: None)
  Receive Date: 20061228
  Receipt Date: 20060525
  Transmission Date: 20070319
  Serious: No
  Sender: FDA-Public Use
  Company Number: US-GLAXOSMITHKLINE-A0606942A

PATIENT
  Age: 59 Year
  Sex: Male

DRUGS (3)
  1. AVODART [Suspect]
     Indication: BENIGN PROSTATIC HYPERPLASIA
     Dosage: .5MG PER DAY
     Route: 048
     Dates: start: 20060520
  2. LIPITOR [Concomitant]
  3. FLOMAX [Concomitant]
     Dates: end: 20060520

REACTIONS (2)
  - URINARY HESITATION [None]
  - URINARY RETENTION [None]
